FAERS Safety Report 6148131-2 (Version None)
Quarter: 2009Q2

REPORT INFORMATION
  Report Type: 
  Country: None (occurrence: None)
  Receive Date: 20090408
  Receipt Date: 20090401
  Transmission Date: 20091009
  Serious: Yes (Hospitalization)
  Sender: FDA-Public Use
  Company Number: JP-ASTRAZENECA-2009SE01395

PATIENT
  Sex: Female

DRUGS (1)
  1. AMIAS [Suspect]
     Route: 048

REACTIONS (2)
  - CELLULITIS [None]
  - RASH [None]
